FAERS Safety Report 5679361-1 (Version None)
Quarter: 2008Q1

REPORT INFORMATION
  Report Type: 
  Country: None (occurrence: None)
  Receive Date: 20080321
  Receipt Date: 20080305
  Transmission Date: 20080703
  Serious: Yes (Hospitalization)
  Sender: FDA-Public Use
  Company Number: 2008BM000045

PATIENT
  Age: 11 Year
  Sex: Male
  Weight: 25 kg

DRUGS (4)
  1. NAGLAZYME [Suspect]
     Indication: MUCOPOLYSACCHARIDOSIS VI
     Dosage: 25 MG; QW; IV
     Route: 042
     Dates: start: 20050720, end: 20080225
  2. FUROSEMIDE [Concomitant]
  3. CAPTOPRIL [Concomitant]
  4. CLAVULANATE POTASSIUM [Concomitant]

REACTIONS (4)
  - CHEST X-RAY ABNORMAL [None]
  - DYSPNOEA AT REST [None]
  - OEDEMA PERIPHERAL [None]
  - PNEUMONIA [None]
